FAERS Safety Report 5647116-X (Version None)
Quarter: 2008Q1

REPORT INFORMATION
  Report Type: 
  Country: None (occurrence: None)
  Receive Date: 20080131
  Receipt Date: 20071204
  Transmission Date: 20080703
  Serious: No
  Sender: FDA-Public Use
  Company Number: 163-21880-07120259

PATIENT
  Age: 53 Year
  Sex: Female
  Weight: 74.8435 kg

DRUGS (10)
  1. REVLIMID [Suspect]
     Indication: MULTIPLE MYELOMA
     Dosage: 15 MG, DAILY FOR 21 DAYS THEN OFF 7 DAYS, ORAL
     Route: 048
     Dates: start: 20070319
  2. VITAMIN B6 [Concomitant]
  3. VITAMIN B12 [Concomitant]
  4. MULTIVIT/MIN [Concomitant]
  5. IRON (IRON) [Concomitant]
  6. FOLIC ACID [Concomitant]
  7. ASPIRIN [Concomitant]
  8. VITAMIN E MTC (CAPSULES) [Concomitant]
  9. ACETYL-L CARNITINE [Concomitant]
  10. ALPHA LIPOIC ACID (THIOCTIC ACID) [Concomitant]

REACTIONS (2)
  - MUSCLE SPASMS [None]
  - OEDEMA PERIPHERAL [None]
